FAERS Safety Report 4723365-X (Version None)
Quarter: 2005Q3

REPORT INFORMATION
  Report Type: 
  Country: None (occurrence: None)
  Receive Date: 20050719
  Receipt Date: 20050329
  Transmission Date: 20060218
  Serious: Yes (Hospitalization)
  Sender: FDA-Public Use
  Company Number: 2005BI006910

PATIENT
  Age: 65 Year
  Sex: Male

DRUGS (1)
  1. AVONEX [Suspect]
     Indication: MULTIPLE SCLEROSIS
     Dosage: 30 UG; QW; IM
     Route: 030
     Dates: start: 20020729

REACTIONS (5)
  - BALANCE DISORDER [None]
  - CONFUSIONAL STATE [None]
  - HYPERHIDROSIS [None]
  - MULTIPLE SCLEROSIS RELAPSE [None]
  - NECK PAIN [None]
